FAERS Safety Report 9315258 (Version 2)
Quarter: 2013Q2

REPORT INFORMATION
  Report Type: Spontaneous
  Country: PL (occurrence: PL)
  Receive Date: 20130529
  Receipt Date: 20130605
  Transmission Date: 20140414
  Serious: Yes (Hospitalization, Other)
  Sender: FDA-Public Use
  Company Number: PL-BRISTOL-MYERS SQUIBB COMPANY-18916213

PATIENT
  Age: 52 Year
  Sex: Female

DRUGS (2)
  1. DASATINIB [Suspect]
     Indication: CHRONIC MYELOID LEUKAEMIA
     Dosage: 14DAYS 50 MG/DAY?FURTHER 7 DAYS DOSE INCREASED 100MG/DAY
     Dates: start: 200811
  2. HYDROXYUREA [Suspect]
     Dosage: OCT02 TO JAN03,AUG08 TO NOV08?LATER RECEIVED 500 MG THREE TIMES A WEEK
     Dates: start: 200210

REACTIONS (3)
  - Pleural effusion [Recovered/Resolved]
  - Pneumonia [Unknown]
  - Upper respiratory tract infection [Unknown]
